FAERS Safety Report 10009476 (Version 1)
Quarter: 2014Q1

REPORT INFORMATION
  Report Type: Spontaneous
  Country: CN (occurrence: CN)
  Receive Date: 20140313
  Receipt Date: 20140313
  Transmission Date: 20141002
  Serious: No
  Sender: FDA-Public Use
  Company Number: CN-MERCK-1403CHN006616

PATIENT
  Age: 76 Year
  Sex: Female

DRUGS (4)
  1. CASPOFUNGIN ACETATE [Suspect]
     Indication: ASPERGILLUS INFECTION
     Dosage: 70 MG, QD
     Route: 042
  2. CASPOFUNGIN ACETATE [Suspect]
     Dosage: 50 MG, QD
     Route: 042
  3. VORICONAZOLE [Concomitant]
     Indication: ASPERGILLUS INFECTION
     Dosage: 6 MG/KG, Q12H
     Route: 042
  4. VORICONAZOLE [Concomitant]
     Dosage: 4 MG/KG, Q12H
     Route: 042

REACTIONS (1)
  - Drug ineffective [Unknown]
